FAERS Safety Report 9185141 (Version 1)
Quarter: 2012Q4

REPORT INFORMATION
  Report Type: 
  Country: ZA (occurrence: ZA)
  Receive Date: 20121101
  Receipt Date: 20121101
  Transmission Date: 20130627
  Serious: Yes (Death, Hospitalization)
  Sender: FDA-Public Use
  Company Number: ZA-TEVA-367195USA

PATIENT
  Age: 70 Year
  Sex: Female
  Weight: 73 kg

DRUGS (4)
  1. TREANDA [Suspect]
     Indication: NON-HODGKIN^S LYMPHOMA
     Dosage: UID/QD
     Route: 042
     Dates: start: 20120830
  2. GLUCOPHAGE [Concomitant]
     Indication: DIABETES MELLITUS
     Dosage: 1000 Dosage forms Daily;
     Route: 048
     Dates: start: 2001
  3. ASPAVOR [Concomitant]
     Indication: HYPERCHOLESTEROLAEMIA
     Dosage: 40 Milligram Daily;
     Route: 048
     Dates: start: 2011
  4. CORTICOL [Concomitant]
     Indication: HYPERTENSION
     Dosage: 2.5 Dosage forms Daily;
     Route: 048
     Dates: start: 2011

REACTIONS (7)
  - Lymphadenopathy [Unknown]
  - Disease progression [Fatal]
  - Hepatosplenomegaly [Unknown]
  - Renal failure [Unknown]
  - Chills [Unknown]
  - Diarrhoea [Unknown]
  - Confusional state [Unknown]
